FAERS Safety Report 12211848 (Version 4)
Quarter: 2016Q3

REPORT INFORMATION
  Report Type: Spontaneous
  Country: GB (occurrence: GB)
  Receive Date: 20160325
  Receipt Date: 20160808
  Transmission Date: 20161109
  Serious: Yes (Hospitalization, Disabling, Other)
  Sender: FDA-Public Use
  Company Number: GB-TEVA-646621ACC

PATIENT
  Sex: Female
  Weight: 52.5 kg

DRUGS (2)
  1. OMEPRAZOLE. [Concomitant]
     Active Substance: OMEPRAZOLE
     Route: 065
     Dates: start: 201301, end: 201603
  2. ALENDRONIC ACID [Suspect]
     Active Substance: ALENDRONIC ACID
     Indication: OSTEOPOROSIS
     Route: 048
     Dates: start: 200204, end: 201601

REACTIONS (8)
  - Dental care [Unknown]
  - Femur fracture [Unknown]
  - Osteorrhagia [Unknown]
  - Exposed bone in jaw [Unknown]
  - Toothache [Not Recovered/Not Resolved]
  - Pain in jaw [Unknown]
  - Feeding disorder [Unknown]
  - Femur fracture [Recovered/Resolved]

NARRATIVE: CASE EVENT DATE: 2010
